FAERS Safety Report 7483790-3 (Version None)
Quarter: 2011Q2

REPORT INFORMATION
  Report Type: 
  Country: None (occurrence: None)
  Receive Date: 20110517
  Receipt Date: 20110513
  Transmission Date: 20111010
  Serious: Yes (Death, Other)
  Sender: FDA-Public Use
  Company Number: PHHY2010MX62866

PATIENT
  Sex: Female

DRUGS (5)
  1. EXELON [Suspect]
     Dosage: 4.6 MG (5 CM^2)
     Dates: start: 20100101
  2. WELLBUTRIN [Concomitant]
     Dosage: UNK
  3. METICORTEN [Concomitant]
     Dosage: UNK
  4. EXELON [Suspect]
     Indication: DEMENTIA ALZHEIMER'S TYPE
     Dosage: 5 CM^2 (4.6 MG/24 HOURS), 1 PATCH DAILY
     Route: 062
     Dates: start: 20081118, end: 20090224
  5. PROTON [Concomitant]
     Dosage: UNK

REACTIONS (6)
  - HIP FRACTURE [None]
  - LUNG DISORDER [None]
  - PULMONARY EMBOLISM [None]
  - INCREASED UPPER AIRWAY SECRETION [None]
  - VOMITING [None]
  - GAIT DISTURBANCE [None]
